FAERS Safety Report 5076615-7 (Version None)
Quarter: 2006Q3

REPORT INFORMATION
  Report Type: 
  Country: None (occurrence: None)
  Receive Date: 20060807
  Receipt Date: 20060725
  Transmission Date: 20061208
  Serious: Yes (Hospitalization, Congenital Anomaly, Other)
  Sender: FDA-Public Use
  Company Number: 2006077872

PATIENT
  Age: 84 Year
  Sex: Female
  Weight: 36.1 kg

DRUGS (12)
  1. ZYVOX [Suspect]
     Indication: STAPHYLOCOCCAL INFECTION
     Dosage: 1200 MG (600 MG, 2 IN 1 D), INTRAVENOUS
     Route: 042
     Dates: start: 20060601, end: 20060613
  2. VALPROATE SODIUM [Suspect]
     Indication: CONVULSION
     Dosage: 8 ML (4 ML, 2 IN 1 D), ORAL
     Route: 048
     Dates: start: 20060208
  3. INSULIN [Concomitant]
  4. NORVASC [Concomitant]
  5. ASPIRIN [Concomitant]
  6. LASIX [Concomitant]
  7. PROMAC/JPN/ (POLAPREZINC) [Concomitant]
  8. ENALAPRIL MALEATE [Concomitant]
  9. MAGNESIUM OXIDE (MAGNESIUM OXIDE) [Concomitant]
  10. ALL OTHER THERAPEUTIC PRODUCTS (ALL OTHER THERAPEUTIC PRODUCTS) [Concomitant]
  11. ASPARA K (ASPARTATE POTASSIUM) [Concomitant]
  12. TIENAM (CILASTATIN, IMIPENEM) [Concomitant]

REACTIONS (3)
  - CEREBELLAR INFARCTION [None]
  - CONVULSION [None]
  - DEPRESSED LEVEL OF CONSCIOUSNESS [None]
